FAERS Safety Report 13693545 (Version 1)
Quarter: 2017Q2

REPORT INFORMATION
  Report Type: Spontaneous
  Country: BR (occurrence: BR)
  Receive Date: 20170627
  Receipt Date: 20170627
  Transmission Date: 20170830
  Serious: Yes (Other)
  Sender: FDA-Public Use
  Company Number: BR-CIPLA LTD.-2017BR11179

PATIENT

DRUGS (2)
  1. CELECOXIB. [Suspect]
     Active Substance: CELECOXIB
     Indication: GASTROINTESTINAL CANCER METASTATIC
     Dosage: 400 MG, BID
     Route: 065
  2. GEFITINIB [Suspect]
     Active Substance: GEFITINIB
     Indication: GASTROINTESTINAL CANCER METASTATIC
     Dosage: 250 MG, PER DAY
     Route: 065

REACTIONS (1)
  - Toxicity to various agents [Unknown]
